FAERS Safety Report 5811841-8 (Version None)
Quarter: 2008Q3

REPORT INFORMATION
  Report Type: 
  Country: None (occurrence: None)
  Receive Date: 20080714
  Receipt Date: 20080701
  Transmission Date: 20090109
  Serious: No
  Sender: FDA-Public Use
  Company Number: 001759

PATIENT
  Age: 67 Year
  Sex: Male

DRUGS (6)
  1. BUSULFEX [Suspect]
     Indication: STEM CELL TRANSPLANT
     Dosage: 32 ML, DAILY DOSE INTRAVENOUS
     Route: 042
     Dates: start: 20061127, end: 20061128
  2. FLUDARABINE PHOSPHATE [Concomitant]
  3. VALPROATE SODIUM [Concomitant]
  4. LENOGRASTIM (LENOGRASTIM) [Concomitant]
  5. METHOTREXATE [Concomitant]
  6. CYCLOSPORINE [Concomitant]

REACTIONS (3)
  - ANOREXIA [None]
  - MALAISE [None]
  - STAPHYLOCOCCAL SEPSIS [None]
